FAERS Safety Report 9087967 (Version 4)
Quarter: 2013Q2

REPORT INFORMATION
  Report Type: Spontaneous
  Country: FI (occurrence: FI)
  Receive Date: 20130218
  Receipt Date: 20130621
  Transmission Date: 20140414
  Serious: Yes (Life-Threatening, Hospitalization)
  Sender: FDA-Public Use
  Company Number: PHHY2013FI015511

PATIENT
  Age: 67 Year
  Sex: Male

DRUGS (4)
  1. TAMSULOSIN [Suspect]
     Indication: BENIGN PROSTATIC HYPERPLASIA
     Dosage: 0.4 MG, UNK
     Route: 048
     Dates: start: 20130118, end: 20130122
  2. ALCOHOL [Interacting]
  3. ATORVASTATIN ORION [Concomitant]
     Indication: HYPERCHOLESTEROLAEMIA
     Dosage: 10 MG, QD
     Route: 048
     Dates: start: 20020101
  4. MELATONIN [Concomitant]
     Indication: SLEEP DISORDER
     Dosage: 1 MG, BID
     Dates: start: 20130117, end: 20130120

REACTIONS (9)
  - Fall [Recovered/Resolved]
  - Epistaxis [Recovered/Resolved]
  - Skin discolouration [Recovered/Resolved]
  - Heart rate decreased [Recovered/Resolved]
  - Paraesthesia [Recovered/Resolved]
  - Cervical vertebral fracture [Recovered/Resolved]
  - Loss of consciousness [Recovered/Resolved]
  - Blood pressure decreased [Recovered/Resolved]
  - Alcohol interaction [Unknown]
